FAERS Safety Report 8336392-0 (Version None)
Quarter: 2012Q2

REPORT INFORMATION
  Report Type: 
  Country: None (occurrence: None)
  Receive Date: 20120504
  Receipt Date: 20120501
  Transmission Date: 20120825
  Serious: Yes (Hospitalization)
  Sender: FDA-Public Use
  Company Number: PHHY2012NL028337

PATIENT
  Sex: Female

DRUGS (4)
  1. ZOMETA [Suspect]
     Dosage: 4 MG/100 ML, 1X PER 42 DAYS
     Dates: start: 20110422
  2. ZOMETA [Suspect]
     Indication: BREAST CANCER METASTATIC
     Dosage: 4 MG/100 ML, 1X PER 42 DAYS
  3. ZOMETA [Suspect]
     Dosage: 4 MG/100 ML, 1X PER 42 DAYS
     Dates: start: 20120213
  4. CHEMOTHERAPEUTICS [Concomitant]

REACTIONS (3)
  - VIRAL INFECTION [None]
  - NEOPLASM MALIGNANT [None]
  - NEOPLASM PROGRESSION [None]
